FAERS Safety Report 19037110 (Version 3)
Quarter: 2023Q2

REPORT INFORMATION
  Report Type: Other
  Country: US (occurrence: None)
  Receive Date: 20210322
  Receipt Date: 20230426
  Transmission Date: 20230722
  Serious: Yes (Other)
  Sender: FDA-Public Use
  Company Number: US-ROCHE-2793610

PATIENT
  Age: 56 Year
  Sex: Female

DRUGS (15)
  1. CELLCEPT [Suspect]
     Active Substance: MYCOPHENOLATE MOFETIL
     Indication: Systemic lupus erythematosus
     Dosage: 500MG 2 TABLETS BID
     Route: 048
  2. CELLCEPT [Suspect]
     Active Substance: MYCOPHENOLATE MOFETIL
     Dosage: TAKE 3 TABLETS TWICE A DAY
     Route: 048
  3. ALBUTEROL SULFATE [Concomitant]
     Active Substance: ALBUTEROL SULFATE
  4. AMLODIPINE [Concomitant]
     Active Substance: AMLODIPINE BESYLATE
  5. ATORVASTATIN [Concomitant]
     Active Substance: ATORVASTATIN
  6. CALCIUM [Concomitant]
     Active Substance: CALCIUM
  7. DICLOFENAC [Concomitant]
     Active Substance: DICLOFENAC
  8. FEXOFENADINE [Concomitant]
     Active Substance: FEXOFENADINE HYDROCHLORIDE
  9. FISH OIL [Concomitant]
     Active Substance: FISH OIL
  10. HYDROXYCHLOROQUINE [Concomitant]
     Active Substance: HYDROXYCHLOROQUINE
  11. LISINOPRIL [Concomitant]
     Active Substance: LISINOPRIL
  12. ACETYLCYSTEINE [Concomitant]
     Active Substance: ACETYLCYSTEINE
  13. PAROXETINE [Concomitant]
     Active Substance: PAROXETINE
  14. PREDNISONE [Concomitant]
     Active Substance: PREDNISONE
  15. HERBALS\TURMERIC [Concomitant]
     Active Substance: HERBALS\TURMERIC

REACTIONS (33)
  - Foot fracture [Unknown]
  - Neutropenia [Unknown]
  - Obesity [Unknown]
  - Stress [Unknown]
  - Dry eye [Unknown]
  - Dry mouth [Unknown]
  - Myalgia [Unknown]
  - Peripheral swelling [Unknown]
  - Butterfly rash [Unknown]
  - Photosensitivity reaction [Unknown]
  - Hypoaesthesia [Unknown]
  - Headache [Unknown]
  - Fatigue [Unknown]
  - Alopecia [Unknown]
  - Temperature intolerance [Unknown]
  - Lymphadenopathy [Unknown]
  - Arthralgia [Unknown]
  - Haematuria [Unknown]
  - Leukopenia [Unknown]
  - Lymphopenia [Unknown]
  - Complement factor C4 decreased [Unknown]
  - Complement factor C3 decreased [Unknown]
  - Back pain [Unknown]
  - Pharyngitis [Unknown]
  - Anaemia [Unknown]
  - Proteinuria [Unknown]
  - Pain [Recovered/Resolved]
  - Musculoskeletal stiffness [Unknown]
  - Weight increased [Unknown]
  - Malaise [Unknown]
  - Pain [Unknown]
  - Intentional product misuse [Unknown]
  - Off label use [Unknown]

NARRATIVE: CASE EVENT DATE: 20220101
